FAERS Safety Report 6517529 (Version 8)
Quarter: 2014Q2

REPORT INFORMATION
  Report Type: Spontaneous
  Country: GB (occurrence: GB)
  Receive Date: 20080102
  Receipt Date: 20140523
  Transmission Date: 20141212
  Serious: Yes (Hospitalization, Other)
  Sender: FDA-Public Use
  Company Number: GB-ELI_LILLY_AND_COMPANY-GB200712004506

PATIENT
  Age: 44 Year
  Sex: Female

DRUGS (8)
  1. OLANZAPINE [Suspect]
     Indication: BIPOLAR DISORDER
     Dosage: UNK, UNKNOWN
     Route: 065
  2. OLANZAPINE [Suspect]
     Dosage: 30 MG, DAILY (1/D)
     Route: 065
  3. OLANZAPINE [Suspect]
     Dosage: 20 MG, DAILY (1/D)
     Route: 065
  4. HALOPERIDOL [Suspect]
     Indication: BIPOLAR DISORDER
     Dosage: 6 MG, DAILY (1/D)
     Route: 065
  5. HALOPERIDOL [Suspect]
     Dosage: UNK, UNKNOWN
     Route: 065
  6. TRIFLUOPERAZINE [Concomitant]
     Dosage: UNK, UNKNOWN
     Route: 065
  7. VALPROATE SEMISODIUM [Concomitant]
     Indication: MANIA
     Dosage: 1500 MG, DAILY (1/D)
     Route: 065
  8. VALPROATE SEMISODIUM [Concomitant]
     Dosage: 2000 MG, DAILY (1/D) (ABOUT 35 MG/KG)
     Route: 065

REACTIONS (9)
  - Hyperprolactinaemia [Recovered/Resolved]
  - Somatoform disorder pregnancy [Recovered/Resolved]
  - Abdominal distension [Not Recovered/Not Resolved]
  - Weight increased [Not Recovered/Not Resolved]
  - Hostility [Recovered/Resolved]
  - Irritability [Recovered/Resolved]
  - Delusion [Recovered/Resolved]
  - Somatic delusion [Recovered/Resolved]
  - Prescribed overdose [Unknown]
